FAERS Safety Report 6239420-1 (Version None)
Quarter: 2009Q2

REPORT INFORMATION
  Report Type: 
  Country: None (occurrence: None)
  Receive Date: 20090622
  Receipt Date: 20090610
  Transmission Date: 20091009
  Serious: Yes (Hospitalization, Disabling)
  Sender: FDA-Public Use
  Company Number: GB-ELI_LILLY_AND_COMPANY-GB200906002392

PATIENT
  Sex: Male

DRUGS (1)
  1. HUMALOG [Suspect]
     Dosage: 150 IU, UNK
     Dates: start: 20050701, end: 20050701

REACTIONS (3)
  - BRAIN INJURY [None]
  - COMA [None]
  - WRONG DRUG ADMINISTERED [None]
